FAERS Safety Report 10381144 (Version 2)
Quarter: 2014Q3

REPORT INFORMATION
  Report Type: Spontaneous
  Country: US (occurrence: None)
  Receive Date: 20140808
  Receipt Date: 20140903
  Transmission Date: 20150326
  Serious: Yes (Hospitalization, Other)
  Sender: FDA-Public Use
  Company Number: 2014-US-005547

PATIENT
  Age: 94 Year
  Sex: Female

DRUGS (5)
  1. AMIODARONE [Suspect]
     Active Substance: AMIODARONE
     Indication: CARDIAC DISORDER
     Dosage: UNKNOWN DOSE?
  2. FLUVOXAMINE MALEATE. [Suspect]
     Active Substance: FLUVOXAMINE MALEATE
     Indication: OBSESSIVE-COMPULSIVE DISORDER
     Dosage: UNKNOWN DOSE
  3. LEVOTHYROXINE (LEVOTHYROXINE SODIUM) [Concomitant]
  4. LUVOX CR [Suspect]
     Active Substance: FLUVOXAMINE MALEATE
     Indication: OBSESSIVE-COMPULSIVE DISORDER
     Route: 048
  5. MORPHINE (MORPHINE) [Concomitant]

REACTIONS (5)
  - Thyroid disorder [None]
  - Blood sodium decreased [None]
  - Drug ineffective [None]
  - Abasia [None]
  - Abdominal pain upper [None]
